FAERS Safety Report 19145417 (Version 1)
Quarter: 2021Q2

REPORT INFORMATION
  Report Type: Report from Study
  Country: JP (occurrence: JP)
  Receive Date: 20210416
  Receipt Date: 20210416
  Transmission Date: 20210717
  Serious: Yes (Death)
  Sender: FDA-Public Use
  Company Number: JP-PFIZER INC-2021413346

PATIENT

DRUGS (7)
  1. METHOTREXATE SODIUM. [Suspect]
     Active Substance: METHOTREXATE SODIUM
     Dosage: 12 MG/M2, CYCLIC (IT TRIPLE DAY 5 AND 12)
     Route: 037
  2. VINCRISTINE [Suspect]
     Active Substance: VINCRISTINE
     Dosage: 1 MG/M2, CYCLIC  (DAY 1)
     Route: 042
  3. CYCLOPHOSPHAMIDE. [Suspect]
     Active Substance: CYCLOPHOSPHAMIDE
     Dosage: (1.0 G/M2 I.V. DAY 5, 6 AND 7)
     Route: 042
  4. VINCRISTINE [Suspect]
     Active Substance: VINCRISTINE
     Dosage: 2 MG/M2, CYCLIC  (DAY 5 AND 12)
     Route: 042
  5. CYTARABINE. [Suspect]
     Active Substance: CYTARABINE
     Dosage: 30 MG/M2, CYCLIC (IT TRIPLE DAY 5 AND 12)
  6. PREDNISOLONE. [Suspect]
     Active Substance: PREDNISOLONE
     Dosage: 60 MG/M2, CYCLIC  (DAY 1?12)
  7. HYDROCORTISONE SODIUM SUCCINATE [Suspect]
     Active Substance: HYDROCORTISONE SODIUM SUCCINATE
     Dosage: 30 MG/M2 (IT TRIPLE DAY 5 AND 12)

REACTIONS (1)
  - Toxicity to various agents [Fatal]
